FAERS Safety Report 9012258 (Version 1)
Quarter: 2013Q1

REPORT INFORMATION
  Report Type: Spontaneous
  Country: BE (occurrence: BE)
  Receive Date: 20130114
  Receipt Date: 20130114
  Transmission Date: 20140127
  Serious: Yes (Other)
  Sender: FDA-Public Use
  Company Number: PHHY2013BE002736

PATIENT
  Sex: 0

DRUGS (1)
  1. CERTICAN [Suspect]
     Indication: PROPHYLAXIS AGAINST TRANSPLANT REJECTION

REACTIONS (3)
  - Protein-losing gastroenteropathy [Recovering/Resolving]
  - Oedema [Recovered/Resolved]
  - Blood albumin decreased [Unknown]
